FAERS Safety Report 5884395-8 (Version None)
Quarter: 2008Q3

REPORT INFORMATION
  Report Type: 
  Country: None (occurrence: None)
  Receive Date: 20080915
  Receipt Date: 20080903
  Transmission Date: 20090109
  Serious: Yes (Death)
  Sender: FDA-Public Use
  Company Number: JP-PFIZER INC-2008069913

PATIENT
  Sex: Male

DRUGS (7)
  1. ZYVOX [Suspect]
     Indication: STAPHYLOCOCCAL INFECTION
     Route: 042
     Dates: start: 20080806, end: 20080818
  2. CIPROFLOXACIN [Suspect]
     Indication: LUNG INFECTION
     Route: 042
     Dates: start: 20080804, end: 20080818
  3. CLEANAL [Concomitant]
     Route: 048
     Dates: start: 20080728, end: 20080818
  4. MUCOSOLVAN [Concomitant]
     Route: 048
     Dates: start: 20080728, end: 20080818
  5. HOKUNALIN [Concomitant]
     Route: 062
     Dates: start: 20080728, end: 20080818
  6. PENTAZOCINE LACTATE [Concomitant]
     Route: 042
     Dates: start: 20080728, end: 20080818
  7. LOXONIN [Concomitant]
     Route: 048
     Dates: start: 20080728, end: 20080818

REACTIONS (2)
  - CARDIO-RESPIRATORY ARREST [None]
  - PLATELET COUNT DECREASED [None]
